FAERS Safety Report 8153638-2 (Version None)
Quarter: 2012Q1

REPORT INFORMATION
  Report Type: 
  Country: None (occurrence: None)
  Receive Date: 20120221
  Receipt Date: 20120206
  Transmission Date: 20120608
  Serious: Yes (Other)
  Sender: FDA-Public Use
  Company Number: GB-WATSON-2012-02449

PATIENT
  Age: 69 Year
  Sex: Male

DRUGS (4)
  1. ETOPOSIDE [Suspect]
  2. BLEOMYCIN [Suspect]
  3. CISPLATIN [Suspect]
  4. CARBOPLATIN [Suspect]
     Indication: TESTICULAR GERM CELL CANCER
     Route: 065

REACTIONS (2)
  - BLOOD CREATININE INCREASED [None]
  - GASTROINTESTINAL HAEMORRHAGE [None]
